FAERS Safety Report 7940124-5 (Version None)
Quarter: 2011Q4

REPORT INFORMATION
  Report Type: 
  Country: None (occurrence: None)
  Receive Date: 20111125
  Receipt Date: 20111114
  Transmission Date: 20120403
  Serious: Yes (Hospitalization, Other)
  Sender: FDA-Public Use
  Company Number: US-ELI_LILLY_AND_COMPANY-US201107002188

PATIENT
  Sex: Female

DRUGS (7)
  1. FORTEO [Suspect]
     Indication: OSTEOPOROSIS
     Dosage: 20 UG, QD
     Dates: start: 20110624
  2. ASPIRIN [Concomitant]
  3. GLUCOPHAGE [Concomitant]
  4. VYTORIN [Concomitant]
  5. SYNTHROID [Concomitant]
  6. VITAMIN B-12 [Concomitant]
     Dosage: UNK, MONTHLY (1/M)
  7. EVISTA [Suspect]
     Indication: OSTEOPOROSIS
     Dosage: 60 MG, UNK
     Dates: end: 20051101

REACTIONS (14)
  - CLAVICLE FRACTURE [None]
  - BACK PAIN [None]
  - GAIT DISTURBANCE [None]
  - TOOTH DISORDER [None]
  - MUSCULOSKELETAL PAIN [None]
  - BONE PAIN [None]
  - DIZZINESS [None]
  - TOOTH ABSCESS [None]
  - FALL [None]
  - LOOSE TOOTH [None]
  - HIP FRACTURE [None]
  - ARTHRALGIA [None]
  - NECK PAIN [None]
  - DYSPNOEA [None]
